FAERS Safety Report 26140870 (Version 1)
Quarter: 2025Q4

REPORT INFORMATION
  Report Type: Spontaneous
  Country: US (occurrence: US)
  Receive Date: 20251210
  Receipt Date: 20251210
  Transmission Date: 20260118
  Serious: No
  Sender: ABBVIE
  Company Number: US-ABBVIE-6583710

PATIENT

DRUGS (1)
  1. CREON [Suspect]
     Active Substance: PANCRELIPASE AMYLASE\PANCRELIPASE LIPASE\PANCRELIPASE PROTEASE
     Indication: Pancreatic failure
     Dosage: NDC: 0032-2636-01, DOSE: 24000 LIPASE UNIT, QUANTITY: 3 BOTTLES - 1 MONTH SUPPLY, EXCURSION DURAT...
     Route: 048

REACTIONS (1)
  - Product storage error [Unknown]
